FAERS Safety Report 9522913 (Version 1)
Quarter: 2013Q3

REPORT INFORMATION
  Report Type: Spontaneous
  Country: CA (occurrence: None)
  Receive Date: 20130911
  Receipt Date: 20130911
  Transmission Date: 20140515
  Serious: Yes (Hospitalization)
  Sender: FDA-Public Use
  Company Number: AECAN201300050

PATIENT
  Age: 37 Year
  Sex: Female

DRUGS (5)
  1. GAMUNEX (IMMUNE GLOBULIN IV (HUMAN), CAPRYLATE/CHROMATOGRAPHY PURIFIED) (10 PCT) [Suspect]
     Indication: STEVENS-JOHNSON SYNDROME
     Route: 042
     Dates: start: 20130116, end: 20130118
  2. IGIVNEX [Suspect]
     Indication: STEVENS-JOHNSON SYNDROME
     Route: 042
     Dates: start: 20130116, end: 20130118
  3. EFFEXOR [Concomitant]
  4. ZANTAC [Concomitant]
  5. SOLUMEDROL [Concomitant]

REACTIONS (1)
  - Haemolysis [None]
